FAERS Safety Report 11906446 (Version 5)
Quarter: 2019Q1

REPORT INFORMATION
  Report Type: Spontaneous
  Country: US (occurrence: US)
  Receive Date: 20160111
  Receipt Date: 20190311
  Transmission Date: 20190417
  Serious: Yes (Hospitalization, Other)
  Sender: FDA-Public Use
  Company Number: US-PFIZER INC-2015463056

PATIENT
  Age: 67 Year
  Sex: Female

DRUGS (5)
  1. LYRICA [Suspect]
     Active Substance: PREGABALIN
     Indication: NEUROPATHY PERIPHERAL
     Dosage: 150 MG, 2X/DAY
  2. CALCIUM +VIT D [Concomitant]
     Active Substance: CALCIUM\VITAMIN D
     Dosage: UNK (CALCIUM 600 MG WITH VIT D)
  3. LYRICA [Suspect]
     Active Substance: PREGABALIN
     Dosage: UNK (DOSAGE INCREASED)
     Dates: start: 2014
  4. DICLOFENAC [Concomitant]
     Active Substance: DICLOFENAC
     Indication: ARTHRITIS
     Dosage: UNK (50 MG X 2)
  5. VITAMIN C [Concomitant]
     Active Substance: ASCORBIC ACID
     Dosage: UNK

REACTIONS (4)
  - Pneumonia [Unknown]
  - Hypertension [Unknown]
  - Condition aggravated [Unknown]
  - Neuropathy peripheral [Unknown]
